FAERS Safety Report 10720621 (Version 7)
Quarter: 2015Q4

REPORT INFORMATION
  Report Type: Report from Study
  Country: US (occurrence: US)
  Receive Date: 20150119
  Receipt Date: 20151023
  Transmission Date: 20160304
  Serious: Yes (Other)
  Sender: FDA-Public Use
  Company Number: US-AMGEN-USASL2015001938

PATIENT
  Age: 52 Year
  Sex: Male
  Weight: 86.17 kg

DRUGS (2)
  1. ENBREL [Suspect]
     Active Substance: ETANERCEPT
     Indication: PSORIASIS
     Dosage: 50 MG, QWK
     Route: 058
     Dates: start: 20131219
  2. UROXATRAL [Concomitant]
     Active Substance: ALFUZOSIN HYDROCHLORIDE
     Dosage: UNK
     Route: 048

REACTIONS (10)
  - Injection site haemorrhage [Recovered/Resolved]
  - Precancerous skin lesion [Recovered/Resolved]
  - Skin plaque [Recovering/Resolving]
  - Cystitis interstitial [Unknown]
  - Heavy exposure to ultraviolet light [Unknown]
  - Actinic keratosis [Unknown]
  - Inappropriate schedule of drug administration [Not Recovered/Not Resolved]
  - Injection site induration [Recovered/Resolved]
  - Drug dose omission [Unknown]
  - Injection site pain [Recovered/Resolved]

NARRATIVE: CASE EVENT DATE: 20150521
